FAERS Safety Report 10657145 (Version 2)
Quarter: 2015Q1

REPORT INFORMATION
  Report Type: Spontaneous
  Country: FR (occurrence: None)
  Receive Date: 20141215
  Receipt Date: 20150121
  Transmission Date: 20150720
  Serious: Yes (Hospitalization)
  Sender: FDA-Public Use
  Company Number: FR2014GSK005634

PATIENT
  Age: 82 Year
  Sex: Female

DRUGS (10)
  1. UVEDOSE COLECALCIFEROL) [Concomitant]
  2. MOVICOL (MACROGOL + POTASSIUM CHLORIDE + SODIUM BICARBONATE + SODIUM CHLORIDE) [Concomitant]
  3. DEXERYL (FRANCE) (GLYCEROL + PARAFFIN, LIQUID + WHITE SOFT PARFAFFIN) [Concomitant]
  4. SECTRAL [Concomitant]
     Active Substance: ACEBUTOLOL HYDROCHLORIDE
  5. APROVEL (IRBESARTAN) [Concomitant]
  6. DEROXAT [Suspect]
     Active Substance: PAROXETINE HYDROCHLORIDE
     Indication: DEPRESSION
     Route: 048
     Dates: start: 20140911
  7. HEMIGOXINE [Suspect]
     Active Substance: DIGOXIN
     Indication: CARDIAC FAILURE
     Dosage: 0.125 MG, Z ?ORAL
     Route: 048
  8. PREVISCAN (NOS) (AMBIGUOUS MEDICATION) [Concomitant]
  9. LASILIX (FUROSEMIDE) [Concomitant]
     Active Substance: FUROSEMIDE
  10. ZOLPIDEM (ZOLPIDEM) [Concomitant]
     Active Substance: ZOLPIDEM TARTRATE

REACTIONS (5)
  - Atrial fibrillation [None]
  - Arrhythmia [None]
  - Drug level increased [None]
  - Right ventricular failure [None]
  - Anhedonia [None]

NARRATIVE: CASE EVENT DATE: 20140915
